FAERS Safety Report 15602935 (Version 2)
Quarter: 2018Q4

REPORT INFORMATION
  Report Type: Report from Study
  Country: CA (occurrence: CA)
  Receive Date: 20181109
  Receipt Date: 20181207
  Transmission Date: 20190205
  Serious: Yes (Other)
  Sender: FDA-Public Use
  Company Number: CA-JNJFOC-20181100945

PATIENT
  Age: 11 Year
  Sex: Female
  Weight: 34 kg

DRUGS (1)
  1. REMICADE [Suspect]
     Active Substance: INFLIXIMAB
     Indication: CROHN^S DISEASE
     Route: 042

REACTIONS (9)
  - Rectal haemorrhage [Unknown]
  - Pain [Recovered/Resolved]
  - Anal fistula [Not Recovered/Not Resolved]
  - Nausea [Unknown]
  - Infusion related reaction [Unknown]
  - Vaginal haemorrhage [Unknown]
  - Somnolence [Unknown]
  - Seizure [Unknown]
  - Vomiting [Unknown]

NARRATIVE: CASE EVENT DATE: 2018
